FAERS Safety Report 24829971 (Version 1)
Quarter: 2025Q1

REPORT INFORMATION
  Report Type: Other
  Country: GB (occurrence: GB)
  Receive Date: 20250110
  Receipt Date: 20250110
  Transmission Date: 20250408
  Serious: Yes (Other)
  Sender: MACLEODS
  Company Number: GB-MHRA-TPP35310615C22628363YC1735559267111

PATIENT

DRUGS (5)
  1. ROSUVASTATIN [Suspect]
     Active Substance: ROSUVASTATIN
     Indication: Blood cholesterol increased
     Dosage: TAKE ONE TABLET ONCE DAILY TO LOWER CHOLESTEROL...
     Route: 065
     Dates: start: 20241106, end: 20241204
  2. AEROCHAMBER PLUS [Concomitant]
     Indication: Ill-defined disorder
     Route: 065
     Dates: start: 20231102
  3. ESTRADIOL [Concomitant]
     Active Substance: ESTRADIOL
     Indication: Ill-defined disorder
     Dosage: INSERT ONE TABLET  VAGINALLY TWICE A WEEK FOR O...
     Route: 067
     Dates: start: 20231102
  4. ALBUTEROL [Concomitant]
     Active Substance: ALBUTEROL
     Indication: Ill-defined disorder
     Dosage: INHALE TWO PUFFS UP TO EVERY 4HOURS
     Dates: start: 20231102
  5. BEMPEDOIC ACID [Concomitant]
     Active Substance: BEMPEDOIC ACID
     Indication: Ill-defined disorder
     Dosage: TAKE ONE DAILY
     Route: 065
     Dates: start: 20240716, end: 20241106

REACTIONS (3)
  - Muscle spasms [Unknown]
  - Pain [Unknown]
  - Abdominal pain [Unknown]
